FAERS Safety Report 20013518 (Version 2)
Quarter: 2021Q4

REPORT INFORMATION
  Report Type: Report from Study
  Country: US (occurrence: US)
  Receive Date: 20211029
  Receipt Date: 20211213
  Transmission Date: 20220303
  Serious: Yes (Hospitalization, Other)
  Sender: FDA-Public Use
  Company Number: US-BAYER-2021A231422

PATIENT
  Age: 68 Year
  Sex: Male

DRUGS (2)
  1. XOFIGO [Suspect]
     Active Substance: RADIUM RA-223 DICHLORIDE
     Indication: Hormone-refractory prostate cancer
     Dates: start: 20210922
  2. XGEVA [Suspect]
     Active Substance: DENOSUMAB
     Dosage: UNK

REACTIONS (5)
  - Haemoglobin decreased [None]
  - Laboratory test abnormal [Unknown]
  - Red blood cell count decreased [None]
  - Haemoglobin decreased [None]
  - Infection [None]
